FAERS Safety Report 19861588 (Version 1)
Quarter: 2021Q3

REPORT INFORMATION
  Report Type: Report from Study
  Country: US (occurrence: US)
  Receive Date: 20210921
  Receipt Date: 20210921
  Transmission Date: 20211014
  Serious: Yes (Other)
  Sender: FDA-Public Use
  Company Number: US-TAKEDA-US201937068

PATIENT
  Sex: Female

DRUGS (1)
  1. CUVITRU [Suspect]
     Active Substance: HUMAN IMMUNOGLOBULIN G
     Indication: IMMUNODEFICIENCY COMMON VARIABLE
     Dosage: UNK
     Route: 065

REACTIONS (8)
  - Pulmonary mass [Unknown]
  - Bronchitis chronic [Unknown]
  - Hepatomegaly [Unknown]
  - Sinusitis [Unknown]
  - Immune thrombocytopenia [Unknown]
  - Splenomegaly [Unknown]
  - Lymphadenopathy [Unknown]
  - Platelet count decreased [Unknown]
